FAERS Safety Report 13333339 (Version 1)
Quarter: 2017Q1

REPORT INFORMATION
  Report Type: Spontaneous
  Country: NL (occurrence: NL)
  Receive Date: 20170313
  Receipt Date: 20170313
  Transmission Date: 20170428
  Serious: Yes (Other)
  Sender: FDA-Public Use
  Company Number: NL-PFIZER INC-2017103574

PATIENT
  Weight: 2.99 kg

DRUGS (1)
  1. VENLAFAXINE HCL [Suspect]
     Active Substance: VENLAFAXINE HYDROCHLORIDE
     Indication: ANTIDEPRESSANT THERAPY
     Dosage: 75 MG, UNK
     Route: 064

REACTIONS (7)
  - Feeling jittery [Recovered/Resolved]
  - Irritability [Recovered/Resolved]
  - Withdrawal syndrome [Recovered/Resolved]
  - Premature baby [Unknown]
  - Restlessness [Recovered/Resolved]
  - Maternal exposure during pregnancy [Unknown]
  - Poor feeding infant [Recovered/Resolved]
